FAERS Safety Report 22135539 (Version 1)
Quarter: 2023Q1

REPORT INFORMATION
  Report Type: Spontaneous
  Country: US (occurrence: None)
  Receive Date: 20230323
  Receipt Date: 20230323
  Transmission Date: 20230418
  Serious: No
  Sender: FDA-Public Use
  Company Number: None

PATIENT

DRUGS (1)
  1. BARHEMSYS [Suspect]
     Active Substance: AMISULPRIDE

REACTIONS (1)
  - Wrong technique in product usage process [None]
